FAERS Safety Report 5863409-5 (Version None)
Quarter: 2008Q3

REPORT INFORMATION
  Report Type: 
  Country: None (occurrence: None)
  Receive Date: 20080828
  Receipt Date: 20080821
  Transmission Date: 20090109
  Serious: Yes (Hospitalization)
  Sender: FDA-Public Use
  Company Number: PHBS2008BG05492

PATIENT
  Age: 28 Year
  Sex: Female

DRUGS (5)
  1. CARBAMAZEPINE [Suspect]
     Indication: BIPOLAR DISORDER
     Route: 065
  2. CLONAZEPAM [Suspect]
     Indication: BIPOLAR DISORDER
     Route: 065
  3. CHLORPROTHIXENE [Suspect]
     Indication: BIPOLAR DISORDER
     Route: 065
  4. AMOXICILLIN AND CLAVULANATE POTASSIUM [Concomitant]
     Indication: PNEUMONIA
     Route: 065
  5. GENTAMICIN [Concomitant]
     Indication: PNEUMONIA
     Route: 065

REACTIONS (12)
  - BIOPSY SKIN ABNORMAL [None]
  - CHILLS [None]
  - DERMATITIS EXFOLIATIVE [None]
  - DRUG RASH WITH EOSINOPHILIA AND SYSTEMIC SYMPTOMS [None]
  - LYMPHADENOPATHY [None]
  - LYMPHOCYTE MORPHOLOGY ABNORMAL [None]
  - PERIORBITAL OEDEMA [None]
  - PNEUMONIA [None]
  - PRURITUS [None]
  - PYREXIA [None]
  - RASH [None]
  - SPLENOMEGALY [None]
